FAERS Safety Report 7327885-3 (Version None)
Quarter: 2011Q1

REPORT INFORMATION
  Report Type: 
  Country: None (occurrence: None)
  Receive Date: 20110303
  Receipt Date: 20110221
  Transmission Date: 20110831
  Serious: Yes (Other)
  Sender: FDA-Public Use
  Company Number: GB-JNJFOC-20110207131

PATIENT
  Age: 61 Year
  Sex: Female

DRUGS (4)
  1. FIBRATES [Concomitant]
  2. TRUVADA [Suspect]
     Indication: HIV INFECTION
     Route: 065
  3. PREZISTA [Suspect]
     Indication: HIV INFECTION
     Route: 048
  4. STATINS NOS [Concomitant]
     Route: 065

REACTIONS (3)
  - PALPITATIONS [None]
  - HYPERHIDROSIS [None]
  - DYSPNOEA [None]
